FAERS Safety Report 14937940 (Version 2)
Quarter: 2018Q3

REPORT INFORMATION
  Report Type: Spontaneous
  Country: GB (occurrence: GB)
  Receive Date: 20180525
  Receipt Date: 20180702
  Transmission Date: 20181010
  Serious: Yes (Hospitalization, Other)
  Sender: FDA-Public Use
  Company Number: GB-SA-2018SA138957

PATIENT
  Sex: Female

DRUGS (1)
  1. AUBAGIO [Suspect]
     Active Substance: TERIFLUNOMIDE
     Dosage: UNK

REACTIONS (10)
  - Liver function test increased [Unknown]
  - Cachexia [Unknown]
  - Nausea [Unknown]
  - Dysphagia [Unknown]
  - Epilepsy [Unknown]
  - Calcium ionised increased [Unknown]
  - Anaemia macrocytic [Unknown]
  - Malabsorption [Unknown]
  - Gastric ulcer [Unknown]
  - Weight decreased [Unknown]
